FAERS Safety Report 9604931 (Version 2)
Quarter: 2013Q4

REPORT INFORMATION
  Report Type: Spontaneous
  Country: US (occurrence: US)
  Receive Date: 20131008
  Receipt Date: 20131008
  Transmission Date: 20140711
  Serious: No
  Sender: FDA-Public Use
  Company Number: US-BAXTER-2013BAX008018

PATIENT
  Age: 63 Year
  Sex: Female

DRUGS (2)
  1. DIANEAL LOW CALCIUM [Suspect]
     Indication: PERITONEAL DIALYSIS
     Route: 033
     Dates: end: 20130219
  2. DIANEAL LOW CALCIUM [Suspect]
     Route: 033
     Dates: start: 20130221

REACTIONS (2)
  - Peritoneal adhesions [Recovered/Resolved]
  - Muscle spasms [Recovered/Resolved]
